FAERS Safety Report 15185568 (Version 8)
Quarter: 2022Q4

REPORT INFORMATION
  Report Type: Report from Study
  Country: US (occurrence: US)
  Receive Date: 20180723
  Receipt Date: 20221027
  Transmission Date: 20230113
  Serious: Yes (Death, Hospitalization, Other)
  Sender: FDA-Public Use
  Company Number: US-SHIRE-US201826841

PATIENT
  Age: 84 Year
  Sex: Female

DRUGS (3)
  1. VELAGLUCERASE ALFA [Suspect]
     Active Substance: VELAGLUCERASE ALFA
     Indication: Gaucher^s disease
     Dosage: 2400 INTERNATIONAL UNIT, MONTHLY
     Route: 042
     Dates: start: 20110310
  2. VELAGLUCERASE ALFA [Suspect]
     Active Substance: VELAGLUCERASE ALFA
     Dosage: UNK
     Route: 042
     Dates: start: 20110310
  3. VELAGLUCERASE ALFA [Suspect]
     Active Substance: VELAGLUCERASE ALFA
     Dosage: UNK
     Route: 065
     Dates: start: 20110402

REACTIONS (7)
  - Death [Fatal]
  - Splenic infarction [Recovered/Resolved]
  - Haemoglobin decreased [Unknown]
  - Back pain [Not Recovered/Not Resolved]
  - Gait disturbance [Unknown]
  - Sciatica [Unknown]
  - Tooth infection [Recovering/Resolving]

NARRATIVE: CASE EVENT DATE: 20180708
